FAERS Safety Report 5266906-9 (Version None)
Quarter: 2007Q1

REPORT INFORMATION
  Report Type: 
  Country: None (occurrence: None)
  Receive Date: 20070316
  Receipt Date: 20070305
  Transmission Date: 20070707
  Serious: Yes (Hospitalization)
  Sender: FDA-Public Use
  Company Number: FR-NOVOPROD-260536

PATIENT
  Age: 73 Year
  Sex: Male

DRUGS (11)
  1. NOVONORM [Suspect]
     Indication: DIABETES MELLITUS NON-INSULIN-DEPENDENT
     Dosage: 1.5 MG, QD
     Route: 048
     Dates: start: 20060920, end: 20070116
  2. KETEK [Concomitant]
     Indication: CHRONIC OBSTRUCTIVE PULMONARY DISEASE
     Route: 048
     Dates: start: 20070108, end: 20070116
  3. CELECTOL                           /00806301/ [Concomitant]
     Indication: MYOCARDIAL INFARCTION
     Dosage: 200 MG, QD
     Route: 048
  4. PLAVIX [Concomitant]
     Indication: MYOCARDIAL INFARCTION
     Dosage: 75 MG, QD
     Route: 048
  5. TRIATEC [Concomitant]
     Indication: MYOCARDIAL INFARCTION
     Dosage: 1.25 MG, QD
     Route: 048
  6. EFFEXOR [Concomitant]
     Dosage: 37.5 MG, QD
     Route: 048
  7. SERETIDE                           /01420901/ [Concomitant]
     Indication: CHRONIC OBSTRUCTIVE PULMONARY DISEASE
     Dosage: 500 MG, QD
     Route: 055
  8. VENTOLINE                          /00139501/ [Concomitant]
     Indication: CHRONIC OBSTRUCTIVE PULMONARY DISEASE
     Dosage: 1 PUFF, QD
     Route: 055
  9. PRAXILENE [Concomitant]
     Dosage: 600 MG, QD
     Route: 048
  10. TAMSULOSIN HCL [Concomitant]
     Dosage: 1 DF, QD
     Route: 048
  11. TANAKAN [Concomitant]
     Dosage: 3 DF, QD
     Route: 048

REACTIONS (4)
  - CONFUSIONAL STATE [None]
  - DRUG INTERACTION [None]
  - HYPOGLYCAEMIC UNCONSCIOUSNESS [None]
  - MALAISE [None]
